FAERS Safety Report 24620652 (Version 1)
Quarter: 2024Q4

REPORT INFORMATION
  Report Type: Spontaneous
  Country: US (occurrence: US)
  Receive Date: 20241114
  Receipt Date: 20241114
  Transmission Date: 20250115
  Serious: Yes (Other)
  Sender: PERRIGO
  Company Number: US-PERRIGO-24US010439

PATIENT
  Age: 69 Year
  Sex: Male
  Weight: 77.098 kg

DRUGS (1)
  1. DAYTIME MULTI-SYMPTOM SEVERE COLD [Suspect]
     Active Substance: ACETAMINOPHEN\DEXTROMETHORPHAN HYDROBROMIDE\GUAIFENESIN\PHENYLEPHRINE HYDROCHLORIDE
     Indication: Nasopharyngitis
     Dosage: 3 PACKS, DAILY
     Route: 048
     Dates: start: 20241103, end: 20241103

REACTIONS (3)
  - Arrhythmia [Recovered/Resolved]
  - Hypertension [Recovered/Resolved]
  - Heart rate increased [Recovered/Resolved]

NARRATIVE: CASE EVENT DATE: 20241104
